FAERS Safety Report 4673543-3 (Version None)
Quarter: 2005Q2

REPORT INFORMATION
  Report Type: 
  Country: None (occurrence: None)
  Receive Date: 20050525
  Receipt Date: 20050303
  Transmission Date: 20051028
  Serious: Yes (Other)
  Sender: FDA-Public Use
  Company Number: PHEH2005US02708

PATIENT
  Age: 83 Year
  Sex: Female

DRUGS (13)
  1. ZOMETA [Suspect]
     Indication: MULTIPLE MYELOMA
     Dosage: 4 MG, QMO
     Dates: start: 20040901, end: 20050301
  2. CARDIZEM [Concomitant]
  3. ECOTRIN [Concomitant]
  4. MULTI-VITAMINS [Concomitant]
  5. CALCIUM GLUCONATE [Concomitant]
  6. FOSAMAX [Concomitant]
  7. VITAMIN B-12 [Concomitant]
  8. PEPCID [Concomitant]
  9. PROTEGRA [Concomitant]
  10. HYDROCHLOROTHIAZIDE [Concomitant]
  11. AMBIEN [Concomitant]
  12. ULTRACET [Concomitant]
  13. VELCADE [Concomitant]
     Dates: start: 20050124, end: 20050203

REACTIONS (3)
  - BONE DEBRIDEMENT [None]
  - BONE DISORDER [None]
  - OSTEONECROSIS [None]
